FAERS Safety Report 20090360 (Version 1)
Quarter: 2021Q4

REPORT INFORMATION
  Report Type: Spontaneous
  Country: US (occurrence: US)
  Receive Date: 20211119
  Receipt Date: 20211119
  Transmission Date: 20220303
  Serious: No
  Sender: FDA-Public Use
  Company Number: US-SANOFI-00857957

PATIENT
  Sex: Female

DRUGS (2)
  1. ALLEGRA [Suspect]
     Active Substance: FEXOFENADINE HYDROCHLORIDE
     Indication: Antiallergic therapy
     Dosage: UNK
  2. CLARITHROMYCIN [Concomitant]
     Active Substance: CLARITHROMYCIN
     Dosage: UNK

REACTIONS (5)
  - Wrong technique in product usage process [Unknown]
  - Product dispensing error [Unknown]
  - Product lot number issue [Unknown]
  - Product packaging difficult to open [Unknown]
  - Contraindicated product administered [Unknown]
